FAERS Safety Report 22173485 (Version 3)
Quarter: 2024Q2

REPORT INFORMATION
  Report Type: Report from Study
  Country: CA (occurrence: CA)
  Receive Date: 20230404
  Receipt Date: 20240411
  Transmission Date: 20240716
  Serious: No
  Sender: FDA-Public Use
  Company Number: CA-PFIZER INC-202300143075

PATIENT
  Age: 10 Year
  Sex: Female

DRUGS (13)
  1. ETHINYL ESTRADIOL\LEVONORGESTREL [Suspect]
     Active Substance: ETHINYL ESTRADIOL\LEVONORGESTREL
     Indication: Contraception
     Route: 050
  2. TYSABRI [Suspect]
     Active Substance: NATALIZUMAB
     Indication: Rasmussen encephalitis
     Dosage: 300 MG (1 EVERY 4 WEEKS)
     Route: 050
  3. TYSABRI [Suspect]
     Active Substance: NATALIZUMAB
     Dosage: 300 MG (1 EVERY 4 WEEKS)
     Route: 050
  4. TYSABRI [Suspect]
     Active Substance: NATALIZUMAB
     Dosage: 300 MG (1 EVERY 4 WEEKS)
     Route: 050
  5. TYSABRI [Suspect]
     Active Substance: NATALIZUMAB
     Dosage: 300 MG (1 EVERY 4 WEEKS)
     Route: 050
  6. TYSABRI [Suspect]
     Active Substance: NATALIZUMAB
     Dosage: 300 MG (1 EVERY 4 WEEKS)
     Route: 050
  7. TYSABRI [Suspect]
     Active Substance: NATALIZUMAB
     Dosage: 300 MG (1 EVERY 4 WEEKS)
     Route: 050
  8. TYSABRI [Suspect]
     Active Substance: NATALIZUMAB
     Indication: Rasmussen encephalitis
     Dosage: 300 MG (1 EVERY 4 WEEKS)
     Route: 050
  9. ETHINYL ESTRADIOL\NORETHINDRONE ACETATE [Concomitant]
     Active Substance: ETHINYL ESTRADIOL\NORETHINDRONE ACETATE
     Indication: Contraception
     Route: 050
  10. METHYLPREDNISOLONE SODIUM SUCCINATE [Concomitant]
     Active Substance: METHYLPREDNISOLONE SODIUM SUCCINATE
     Dosage: 1 G
     Route: 050
  11. VITAMIN C [Concomitant]
     Active Substance: ASCORBIC ACID
     Dosage: UNK
     Route: 050
  12. VITAMIN C [Concomitant]
     Active Substance: ASCORBIC ACID
     Dosage: UNK
     Route: 050
  13. ERGOCALCIFEROL [Concomitant]
     Active Substance: ERGOCALCIFEROL
     Route: 050

REACTIONS (28)
  - Amenorrhoea [Not Recovered/Not Resolved]
  - Anxiety [Not Recovered/Not Resolved]
  - Arthralgia [Not Recovered/Not Resolved]
  - COVID-19 [Not Recovered/Not Resolved]
  - Cough [Not Recovered/Not Resolved]
  - Dehydration [Not Recovered/Not Resolved]
  - Epistaxis [Not Recovered/Not Resolved]
  - Exposure via skin contact [Not Recovered/Not Resolved]
  - Fatigue [Not Recovered/Not Resolved]
  - Gingival disorder [Not Recovered/Not Resolved]
  - Headache [Not Recovered/Not Resolved]
  - Heart rate increased [Not Recovered/Not Resolved]
  - Heavy menstrual bleeding [Not Recovered/Not Resolved]
  - Hyperaesthesia [Not Recovered/Not Resolved]
  - Hypoaesthesia [Not Recovered/Not Resolved]
  - Impulsive behaviour [Not Recovered/Not Resolved]
  - Nasal congestion [Not Recovered/Not Resolved]
  - Nasal discomfort [Not Recovered/Not Resolved]
  - Off label use [Not Recovered/Not Resolved]
  - Pain in extremity [Not Recovered/Not Resolved]
  - Pruritus [Not Recovered/Not Resolved]
  - Pyrexia [Not Recovered/Not Resolved]
  - Scratch [Not Recovered/Not Resolved]
  - Skin plaque [Not Recovered/Not Resolved]
  - Sneezing [Not Recovered/Not Resolved]
  - Therapeutic response unexpected [Not Recovered/Not Resolved]
  - Vein rupture [Not Recovered/Not Resolved]
  - Vomiting [Not Recovered/Not Resolved]
